FAERS Safety Report 25612697 (Version 1)
Quarter: 2025Q3

REPORT INFORMATION
  Report Type: Spontaneous
  Country: EU (occurrence: EU)
  Receive Date: 20250728
  Receipt Date: 20250728
  Transmission Date: 20251021
  Serious: Yes (Other)
  Sender: ROCHE
  Company Number: None

PATIENT
  Age: 82 Year
  Sex: Female
  Weight: 57.3 kg

DRUGS (5)
  1. TECENTRIQ [Suspect]
     Active Substance: ATEZOLIZUMAB
     Indication: Adenosquamous cell lung cancer
     Route: 042
     Dates: start: 20240806
  2. TECENTRIQ [Suspect]
     Active Substance: ATEZOLIZUMAB
     Indication: Lung neoplasm malignant
  3. IBUPROFEN [Concomitant]
     Active Substance: IBUPROFEN
     Route: 065
     Dates: start: 202501
  4. SULFAMETHOXAZOLE\TRIMETHOPRIM [Concomitant]
     Active Substance: SULFAMETHOXAZOLE\TRIMETHOPRIM
     Route: 065
     Dates: start: 20250320, end: 20250327
  5. AMPHOTERICIN B [Concomitant]
     Active Substance: AMPHOTERICIN B
     Route: 065
     Dates: start: 20250401, end: 20250406

REACTIONS (9)
  - Arthralgia [Not Recovered/Not Resolved]
  - Cystitis haemorrhagic [Not Recovered/Not Resolved]
  - Haematuria [Not Recovered/Not Resolved]
  - Pneumonia klebsiella [Not Recovered/Not Resolved]
  - Pharyngitis [Not Recovered/Not Resolved]
  - Candida infection [Not Recovered/Not Resolved]
  - Dermal cyst [Not Recovered/Not Resolved]
  - Hordeolum [Not Recovered/Not Resolved]
  - Ecchymosis [Not Recovered/Not Resolved]

NARRATIVE: CASE EVENT DATE: 20250301
